FAERS Safety Report 8160176-X (Version None)
Quarter: 2012Q1

REPORT INFORMATION
  Report Type: 
  Country: None (occurrence: None)
  Receive Date: 20120103
  Receipt Date: 20111119
  Transmission Date: 20120608
  Serious: No
  Sender: FDA-Public Use
  Company Number: AE-2011-003791

PATIENT
  Age: 57 Year
  Sex: Female

DRUGS (3)
  1. COPEGUS [Concomitant]
  2. PEGASYS [Concomitant]
  3. INCIVEK [Suspect]
     Dosage: 2250 MG 9750 MG, 3 IN 1 D), ORAL
     Route: 048
     Dates: start: 20111002

REACTIONS (5)
  - EYE SWELLING [None]
  - VISUAL IMPAIRMENT [None]
  - EYE PRURITUS [None]
  - EYE PAIN [None]
  - EYELID OEDEMA [None]
